FAERS Safety Report 12994005 (Version 1)
Quarter: 2016Q4

REPORT INFORMATION
  Report Type: Spontaneous
  Country: US (occurrence: US)
  Receive Date: 20161201
  Receipt Date: 20161201
  Transmission Date: 20170207
  Serious: Yes (Other)
  Sender: FDA-Public Use
  Company Number: None

PATIENT
  Age: 68 Year
  Sex: Female
  Weight: 54 kg

DRUGS (5)
  1. NEOMYC=POLYM-DEXAMET EYE OINTM P [Suspect]
     Active Substance: DEXAMETHASONE\NEOMYCIN\POLYMYXIN B
     Indication: BACTERIAL INFECTION
     Dosage: QUANTITY:1 ONE CREAM ONLY;?
     Route: 061
     Dates: start: 20161116, end: 20161124
  2. VITAMIN D [Concomitant]
     Active Substance: CHOLECALCIFEROL
  3. CALCIUM [Concomitant]
     Active Substance: CALCIUM
  4. NEOMYC=POLYM-DEXAMET EYE OINTM P [Suspect]
     Active Substance: DEXAMETHASONE\NEOMYCIN\POLYMYXIN B
     Indication: EYELID INFECTION
     Dosage: QUANTITY:1 ONE CREAM ONLY;?
     Route: 061
     Dates: start: 20161116, end: 20161124
  5. MULTIPLE VITAMIN [Concomitant]
     Active Substance: VITAMINS

REACTIONS (3)
  - Vision blurred [None]
  - Fluid retention [None]
  - Blindness unilateral [None]

NARRATIVE: CASE EVENT DATE: 20161126
